FAERS Safety Report 8605591-2 (Version None)
Quarter: 2012Q3

REPORT INFORMATION
  Report Type: 
  Country: None (occurrence: None)
  Receive Date: 20120820
  Receipt Date: 20120814
  Transmission Date: 20120928
  Serious: Yes (Death, Other)
  Sender: FDA-Public Use
  Company Number: US-SANOFI-AVENTIS-2012SA058432

PATIENT
  Sex: Male
  Weight: 101 kg

DRUGS (10)
  1. ACYCLOVIR [Concomitant]
  2. DOCUSATE [Concomitant]
  3. FLUOROURACIL [Suspect]
     Indication: COLORECTAL CANCER
     Route: 042
     Dates: start: 20070117, end: 20070418
  4. BEVACIZUMAB [Suspect]
     Indication: COLORECTAL CANCER
     Route: 042
     Dates: start: 20070117, end: 20070418
  5. FILGRASTIM [Concomitant]
  6. OXALIPLATIN [Suspect]
     Indication: COLORECTAL CANCER
     Route: 042
     Dates: start: 20070117, end: 20070117
  7. HYDROCHLOROTHIAZIDE [Concomitant]
  8. PHENERGAN HCL [Concomitant]
  9. LEUCOVORIN CALCIUM [Suspect]
     Indication: COLORECTAL CANCER
     Route: 042
     Dates: start: 20070117, end: 20070418
  10. OXALIPLATIN [Suspect]
     Route: 042
     Dates: start: 20070418, end: 20070418

REACTIONS (2)
  - DEATH [None]
  - ATAXIA [None]
